FAERS Safety Report 6202578-4 (Version None)
Quarter: 2009Q2

REPORT INFORMATION
  Report Type: 
  Country: None (occurrence: None)
  Receive Date: 20090526
  Receipt Date: 20090526
  Transmission Date: 20091009
  Serious: Yes (Hospitalization, Other)
  Sender: FDA-Public Use
  Company Number: US-PFIZER INC-2009196362

PATIENT
  Sex: Male
  Weight: 73 kg

DRUGS (2)
  1. LIPITOR [Suspect]
     Dosage: 10 MG, 1X/DAY
     Route: 048
     Dates: start: 20030101, end: 20090407
  2. ACETYLSALICYLIC ACID [Concomitant]

REACTIONS (7)
  - ARTHRALGIA [None]
  - ASTHMA [None]
  - CORONARY ARTERY BYPASS [None]
  - HEART VALVE CALCIFICATION [None]
  - MUSCLE SPASMS [None]
  - MYALGIA [None]
  - WRONG TECHNIQUE IN DRUG USAGE PROCESS [None]
